FAERS Safety Report 4439486-5 (Version None)
Quarter: 2004Q3

REPORT INFORMATION
  Report Type: 
  Country: None (occurrence: None)
  Receive Date: 20040830
  Receipt Date: 20040817
  Transmission Date: 20050211
  Serious: Yes (Hospitalization)
  Sender: FDA-Public Use
  Company Number: 2004056389

PATIENT
  Age: 14 Year
  Sex: Male
  Weight: 52.5 kg

DRUGS (2)
  1. SILDENAFIL (SILDENAFIL) [Suspect]
     Indication: PULMONARY HYPERTENSION
     Dosage: 140 MG (80 MG, 3 IN 1D) ORAL
     Route: 048
     Dates: start: 20040625
  2. ASPIRIN [Concomitant]

REACTIONS (2)
  - CONDITION AGGRAVATED [None]
  - VENTRICULAR ARRHYTHMIA [None]
